FAERS Safety Report 22124393 (Version 1)
Quarter: 2023Q1

REPORT INFORMATION
  Report Type: Other
  Country: RO (occurrence: None)
  Receive Date: 20230322
  Receipt Date: 20230322
  Transmission Date: 20230417
  Serious: Yes (Hospitalization)
  Sender: FDA-Public Use
  Company Number: RO-ROCHE-3309163

PATIENT
  Sex: Female

DRUGS (1)
  1. HERCEPTIN [Suspect]
     Active Substance: TRASTUZUMAB
     Indication: Breast cancer
     Route: 065

REACTIONS (9)
  - Illness [Unknown]
  - Ill-defined disorder [Unknown]
  - Dyspnoea [Unknown]
  - Insomnia [Unknown]
  - Peripheral swelling [Unknown]
  - Joint swelling [Unknown]
  - Spinal disorder [Unknown]
  - White blood cell count decreased [Unknown]
  - Breast mass [Unknown]
